FAERS Safety Report 15043618 (Version 1)
Quarter: 2018Q2

REPORT INFORMATION
  Report Type: Spontaneous
  Country: RO (occurrence: RO)
  Receive Date: 20180621
  Receipt Date: 20180621
  Transmission Date: 20180711
  Serious: Yes (Other)
  Sender: FDA-Public Use
  Company Number: RO-BAYER-2018-116884

PATIENT
  Sex: Male

DRUGS (1)
  1. ACETYLSALICYLIC ACID({=100 MG) [Suspect]
     Active Substance: ASPIRIN
     Route: 064

REACTIONS (3)
  - Foetal exposure timing unspecified [None]
  - Premature baby [None]
  - Low birth weight baby [None]
